FAERS Safety Report 10701387 (Version 1)
Quarter: 2015Q1

REPORT INFORMATION
  Report Type: Spontaneous
  Country: US (occurrence: US)
  Receive Date: 20150109
  Receipt Date: 20150109
  Transmission Date: 20150721
  Serious: Yes (Other)
  Sender: FDA-Public Use
  Company Number: US-CELGENEUS-USA-2014101373

PATIENT
  Sex: Female
  Weight: 72.19 kg

DRUGS (1)
  1. OTEZLA [Suspect]
     Active Substance: APREMILAST
     Indication: PSORIATIC ARTHROPATHY
     Route: 048
     Dates: start: 20140729

REACTIONS (5)
  - Vomiting [Unknown]
  - Arthralgia [Unknown]
  - Pain in extremity [Unknown]
  - Diarrhoea [Unknown]
  - Nausea [Unknown]
